FAERS Safety Report 24711344 (Version 3)
Quarter: 2025Q1

REPORT INFORMATION
  Report Type: Report from Study
  Country: CN (occurrence: CN)
  Receive Date: 20241209
  Receipt Date: 20250112
  Transmission Date: 20250409
  Serious: No
  Sender: ROCHE
  Company Number: CN-ROCHE-3473439

PATIENT
  Age: 55 Year
  Sex: Male
  Weight: 76 kg

DRUGS (40)
  1. POLATUZUMAB VEDOTIN [Suspect]
     Active Substance: POLATUZUMAB VEDOTIN
     Indication: Diffuse large B-cell lymphoma
     Route: 041
     Dates: start: 20231018, end: 20231018
  2. POLATUZUMAB VEDOTIN [Suspect]
     Active Substance: POLATUZUMAB VEDOTIN
     Route: 041
     Dates: start: 20231111, end: 20231111
  3. RITUXIMAB [Suspect]
     Active Substance: RITUXIMAB
     Indication: Diffuse large B-cell lymphoma
     Route: 065
     Dates: start: 20231019, end: 20231019
  4. RITUXIMAB [Suspect]
     Active Substance: RITUXIMAB
     Route: 065
     Dates: start: 20231112, end: 20231112
  5. RITUXIMAB [Suspect]
     Active Substance: RITUXIMAB
     Route: 065
     Dates: start: 20240201, end: 20240201
  6. GRANISETRON [Suspect]
     Active Substance: GRANISETRON
     Indication: Diffuse large B-cell lymphoma
     Dosage: DOSE LAST STUDY DRUG ADMIN PRIOR AE; 3MG?MOST RECENT DOSE: 08/NOV/2023
     Route: 042
     Dates: end: 20231112
  7. DECITABINE [Suspect]
     Active Substance: DECITABINE
     Indication: Diffuse large B-cell lymphoma
     Dosage: START DATE OF MOST RECENT DOSE OF STUDY DRUG: 08-NOV-2023?DOSE PRIOR TO AE: 10 MG
     Route: 042
     Dates: end: 20231225
  8. IFOSFAMIDE [Suspect]
     Active Substance: IFOSFAMIDE
     Indication: Diffuse large B-cell lymphoma
     Route: 042
     Dates: start: 20231021, end: 20231021
  9. IFOSFAMIDE [Suspect]
     Active Substance: IFOSFAMIDE
     Route: 042
     Dates: start: 20231114, end: 20231114
  10. CARBOPLATIN [Suspect]
     Active Substance: CARBOPLATIN
     Indication: Diffuse large B-cell lymphoma
     Route: 042
     Dates: start: 20231021, end: 20231021
  11. CARBOPLATIN [Suspect]
     Active Substance: CARBOPLATIN
     Route: 042
     Dates: start: 20231114, end: 20231114
  12. ETOPOSIDE [Suspect]
     Active Substance: ETOPOSIDE
     Indication: Diffuse large B-cell lymphoma
     Route: 042
     Dates: start: 20231019, end: 20231022
  13. ETOPOSIDE [Suspect]
     Active Substance: ETOPOSIDE
     Route: 042
     Dates: start: 20231113, end: 20231115
  14. ZANUBRUTINIB [Suspect]
     Active Substance: ZANUBRUTINIB
     Indication: Diffuse large B-cell lymphoma
     Route: 048
     Dates: end: 20231109
  15. Posaconazole injection [Concomitant]
     Route: 042
     Dates: start: 20240402, end: 20240417
  16. MEROPENEM [Concomitant]
     Active Substance: MEROPENEM
     Route: 042
     Dates: start: 20240402, end: 20240416
  17. vancocin vial [Concomitant]
     Route: 042
     Dates: start: 20240402, end: 20240413
  18. POTASSIUM CHLORIDE [Concomitant]
     Active Substance: POTASSIUM CHLORIDE
     Route: 048
     Dates: start: 20240321, end: 20240325
  19. POTASSIUM CHLORIDE [Concomitant]
     Active Substance: POTASSIUM CHLORIDE
     Route: 042
     Dates: start: 20240403, end: 20240422
  20. etamsylate injection [Concomitant]
     Route: 042
     Dates: start: 20240405, end: 20240424
  21. Vitamin K1 injection [Concomitant]
     Route: 042
     Dates: start: 20240405, end: 20240424
  22. ESOMEPRAZOLE SODIUM [Concomitant]
     Active Substance: ESOMEPRAZOLE SODIUM
     Route: 042
     Dates: start: 20240405, end: 20240416
  23. SODIUM BICARBONATE [Concomitant]
     Active Substance: SODIUM BICARBONATE
     Route: 042
     Dates: start: 20240320, end: 20240320
  24. COMPOUND KUSHEN INJECTION [Concomitant]
     Route: 042
     Dates: start: 20240320, end: 20240409
  25. ACYCLOVIR [Concomitant]
     Active Substance: ACYCLOVIR
     Route: 050
     Dates: start: 20240322, end: 202404
  26. LEVOFLOXACIN [Concomitant]
     Active Substance: LEVOFLOXACIN
     Route: 050
     Dates: start: 20240322, end: 202404
  27. ondansetron inj [Concomitant]
     Route: 042
     Dates: start: 20240324, end: 20240327
  28. FEBUXOSTAT [Concomitant]
     Active Substance: FEBUXOSTAT
     Route: 048
     Dates: start: 20240327, end: 202404
  29. MAGNESIUM ISOGLYCYRRHIZINATE [Concomitant]
     Active Substance: MAGNESIUM ISOGLYCYRRHIZINATE
     Route: 042
     Dates: start: 20240327, end: 20240416
  30. Recombinant human thrombopoietin injection [Concomitant]
     Dosage: UNIT DOSE 15000 U
     Route: 058
     Dates: start: 20240401, end: 20240411
  31. TROPISETRON [Concomitant]
     Active Substance: TROPISETRON
     Route: 042
     Dates: start: 20231113, end: 20231115
  32. LACTULOSE [Concomitant]
     Active Substance: LACTULOSE
     Route: 048
     Dates: start: 20231105, end: 20231110
  33. OMEPRAZOLE [Concomitant]
     Active Substance: OMEPRAZOLE
     Route: 042
     Dates: start: 20231111, end: 20231111
  34. MESNA [Concomitant]
     Active Substance: MESNA
     Route: 042
     Dates: start: 20231114, end: 20231114
  35. DIPHENHYDRAMINE [Concomitant]
     Active Substance: DIPHENHYDRAMINE
     Route: 030
     Dates: start: 20231226, end: 20231226
  36. METHYLPREDNISOLONE [Concomitant]
     Active Substance: METHYLPREDNISOLONE
     Route: 042
     Dates: start: 20231226, end: 20231226
  37. PANTOPRAZOLE SODIUM [Concomitant]
     Active Substance: PANTOPRAZOLE SODIUM
     Route: 042
     Dates: start: 20231226, end: 20231226
  38. CALCIUM GLUCONATE [Concomitant]
     Active Substance: CALCIUM GLUCONATE
  39. MAGNESIUM ISOGLYCYRRHIZINATE [Concomitant]
     Active Substance: MAGNESIUM ISOGLYCYRRHIZINATE
     Route: 042
     Dates: start: 20231220, end: 20231230
  40. PANTOPRAZOLE SODIUM [Concomitant]
     Active Substance: PANTOPRAZOLE SODIUM
     Route: 042
     Dates: start: 20240202, end: 20240204

REACTIONS (5)
  - White blood cell count decreased [Recovered/Resolved]
  - Neutrophil count decreased [Recovered/Resolved]
  - Globulins decreased [Not Recovered/Not Resolved]
  - Blood lactate dehydrogenase increased [Recovered/Resolved]
  - Lymphocyte count decreased [Not Recovered/Not Resolved]

NARRATIVE: CASE EVENT DATE: 20231114
